FAERS Safety Report 4286727-3 (Version None)
Quarter: 2004Q1

REPORT INFORMATION
  Report Type: 
  Country: None (occurrence: None)
  Receive Date: 20040204
  Receipt Date: 20040115
  Transmission Date: 20041129
  Serious: Yes (Death)
  Sender: FDA-Public Use
  Company Number: JP-JNJFOC-20040200012

PATIENT
  Age: 56 Year
  Sex: Male

DRUGS (5)
  1. FENTANYL [Suspect]
     Indication: CANCER PAIN
     Dosage: SEE IMAGE
     Route: 062
     Dates: start: 20031111, end: 20031114
  2. FENTANYL [Suspect]
     Indication: CANCER PAIN
     Dosage: SEE IMAGE
     Route: 062
     Dates: start: 20031114, end: 20031119
  3. FLURBIPROFEN AXETIL (FLURBIPROFEN AXETIL) [Concomitant]
  4. MORPHINE HYDROCHLORIDE (MORPHINE HYDROCHLORIDE) [Concomitant]
  5. MIDAZOLAM (MIDAZOLAM) [Concomitant]

REACTIONS (1)
  - RECTAL CANCER RECURRENT [None]
